FAERS Safety Report 9160119 (Version 1)
Quarter: 2013Q1

REPORT INFORMATION
  Report Type: Report from Study
  Country: US (occurrence: US)
  Receive Date: 20130313
  Receipt Date: 20130313
  Transmission Date: 20140127
  Serious: Yes (Other)
  Sender: FDA-Public Use
  Company Number: US-ROCHE-1174030

PATIENT
  Age: 79 Year
  Sex: Female
  Weight: 81.72 kg

DRUGS (1)
  1. XELODA [Suspect]
     Indication: COLON CANCER STAGE III
     Route: 048
     Dates: start: 20121020, end: 20130222

REACTIONS (3)
  - Neoplasm malignant [Unknown]
  - Abdominal pain [Unknown]
  - Diarrhoea [Unknown]
